FAERS Safety Report 5215214-0 (Version None)
Quarter: 2007Q1

REPORT INFORMATION
  Report Type: 
  Country: None (occurrence: None)
  Receive Date: 20070122
  Receipt Date: 20070111
  Transmission Date: 20070707
  Serious: Yes (Other)
  Sender: FDA-Public Use
  Company Number: GB-PFIZER INC-2007004472

PATIENT

DRUGS (2)
  1. LYRICA [Suspect]
     Indication: NEURALGIA
  2. DRUG, UNSPECIFIED [Concomitant]

REACTIONS (1)
  - HAEMORRHAGE INTRACRANIAL [None]
